FAERS Safety Report 9775271 (Version 1)
Quarter: 2013Q4

REPORT INFORMATION
  Report Type: Spontaneous
  Country: US (occurrence: None)
  Receive Date: 20131219
  Receipt Date: 20131219
  Transmission Date: 20140711
  Serious: Yes (Other)
  Sender: FDA-Public Use
  Company Number: None

PATIENT
  Age: 59 Year
  Sex: Male

DRUGS (5)
  1. JANUMET [Suspect]
     Indication: DIABETES MELLITUS
     Route: 048
     Dates: start: 20131007, end: 20131023
  2. C-PAP [Concomitant]
  3. VAPORISER [Concomitant]
  4. LEVEMIR FLEX PEN [Concomitant]
  5. ONE TOUCH ULTRA TWO BLOOD GLUCOSE METER [Concomitant]

REACTIONS (2)
  - Night sweats [None]
  - Diarrhoea [None]
